FAERS Safety Report 8462632-3 (Version None)
Quarter: 2012Q2

REPORT INFORMATION
  Report Type: 
  Country: None (occurrence: None)
  Receive Date: 20120625
  Receipt Date: 20120621
  Transmission Date: 20120825
  Serious: Yes (Hospitalization)
  Sender: FDA-Public Use
  Company Number: AU-ROCHE-1076501

PATIENT
  Sex: Male

DRUGS (3)
  1. CYCLOSPORINE [Suspect]
     Indication: RENAL TRANSPLANT
     Dates: start: 20111214
  2. CELLCEPT [Suspect]
     Indication: RENAL TRANSPLANT
     Dates: start: 20061128
  3. PREDNISONE TAB [Suspect]
     Indication: RENAL TRANSPLANT
     Dates: start: 20061201

REACTIONS (1)
  - PNEUMOCYSTIS JIROVECI PNEUMONIA [None]
